FAERS Safety Report 15105933 (Version 1)
Quarter: 2018Q3

REPORT INFORMATION
  Report Type: Spontaneous
  Country: FR (occurrence: FR)
  Receive Date: 20180704
  Receipt Date: 20180704
  Transmission Date: 20181010
  Serious: Yes (Other)
  Sender: FDA-Public Use
  Company Number: FR-ACCORD-069210

PATIENT
  Age: 53 Year
  Sex: Male

DRUGS (8)
  1. OXYCONTIN [Concomitant]
     Active Substance: OXYCODONE HYDROCHLORIDE
  2. CISPLATIN ACCORD [Suspect]
     Active Substance: CISPLATIN
     Indication: CHOLANGIOCARCINOMA
     Dosage: STRENGTH: 1 MG/ML
     Route: 042
     Dates: start: 20180112
  3. SPASFON LYOC [Concomitant]
     Active Substance: PHLOROGLUCINOL
     Dosage: STRENGTH: 160 MG
  4. PRIMPERAN [Concomitant]
     Active Substance: METOCLOPRAMIDE HYDROCHLORIDE
  5. SOLUPRED (PREDNISOLONE SODIUM METAZOATE) [Concomitant]
     Active Substance: PREDNISOLONE SODIUM METAZOATE
  6. DOLIPRANE [Concomitant]
     Active Substance: ACETAMINOPHEN
  7. OXYNORMORO [Concomitant]
     Active Substance: OXYCODONE HYDROCHLORIDE
  8. GEMZAR [Suspect]
     Active Substance: GEMCITABINE HYDROCHLORIDE
     Indication: CHOLANGIOCARCINOMA
     Dosage: STRENGTH: 1000 MG
     Route: 042
     Dates: start: 20180112

REACTIONS (2)
  - Off label use [Unknown]
  - Hepatocellular injury [Not Recovered/Not Resolved]

NARRATIVE: CASE EVENT DATE: 20180113
